FAERS Safety Report 12889898 (Version 2)
Quarter: 2016Q4

REPORT INFORMATION
  Report Type: Spontaneous
  Country: MX (occurrence: MX)
  Receive Date: 20161027
  Receipt Date: 20161028
  Transmission Date: 20170207
  Serious: Yes (Death)
  Sender: FDA-Public Use
  Company Number: MX-ABBVIE-16K-107-1764919-00

PATIENT
  Age: 59 Year
  Sex: Male
  Weight: 78 kg

DRUGS (6)
  1. ISONIAZIDE [Concomitant]
     Active Substance: ISONIAZID
     Indication: LATENT TUBERCULOSIS
     Dosage: EVERY 24 HOURS, DURATION: 6 MONTHS
     Route: 048
     Dates: end: 20161009
  2. ATORVASTATIN [Concomitant]
     Active Substance: ATORVASTATIN
     Indication: ISCHAEMIC CARDIOMYOPATHY
     Dosage: EVERY 24 HOURS
     Route: 048
     Dates: start: 20150716, end: 20161009
  3. HUMIRA [Suspect]
     Active Substance: ADALIMUMAB
     Indication: PSORIASIS
     Route: 058
     Dates: start: 20151020, end: 20160925
  4. ENALAPRIL [Concomitant]
     Active Substance: ENALAPRIL
     Indication: ISCHAEMIC CARDIOMYOPATHY
     Dosage: EVERY 12 HOURS
     Route: 048
     Dates: start: 20150716, end: 20161009
  5. METOPROLOL. [Concomitant]
     Active Substance: METOPROLOL
     Indication: ISCHAEMIC CARDIOMYOPATHY
     Dosage: EVERY 12 HOURS
     Route: 048
     Dates: start: 20150716, end: 20161009
  6. ACETYLSALICYLIC ACID [Concomitant]
     Active Substance: ASPIRIN
     Indication: PRODUCT USED FOR UNKNOWN INDICATION
     Dosage: EVERY 24 HOURS
     Dates: start: 20160716, end: 20161009

REACTIONS (1)
  - Myocardial infarction [Fatal]
